FAERS Safety Report 7621044-2 (Version None)
Quarter: 2011Q3

REPORT INFORMATION
  Report Type: 
  Country: None (occurrence: None)
  Receive Date: 20110719
  Receipt Date: 20110203
  Transmission Date: 20111222
  Serious: No
  Sender: FDA-Public Use
  Company Number: US-KINGPHARMUSA00001-K201100131

PATIENT
  Age: 73 Year
  Sex: Female
  Weight: 52.154 kg

DRUGS (2)
  1. LEVOXYL [Suspect]
     Dosage: 37.5 MCG, QAM
     Route: 048
     Dates: start: 20110120
  2. LEVOXYL [Suspect]
     Indication: HYPOTHYROIDISM
     Dosage: 25 MCG, QAM
     Route: 048
     Dates: start: 20101205, end: 20110120

REACTIONS (1)
  - MUSCLE SPASMS [None]
